FAERS Safety Report 6626399-3 (Version None)
Quarter: 2010Q1

REPORT INFORMATION
  Report Type: 
  Country: None (occurrence: None)
  Receive Date: 20100310
  Receipt Date: 20090716
  Transmission Date: 20100710
  Serious: No
  Sender: FDA-Public Use
  Company Number: US-ABBOTT-09P-163-0586301-00

PATIENT
  Sex: Female
  Weight: 136.2 kg

DRUGS (3)
  1. LUPRON DEPOT [Suspect]
     Indication: MENORRHAGIA
     Route: 030
     Dates: start: 20081001, end: 20081001
  2. LUPRON DEPOT [Suspect]
     Route: 030
     Dates: start: 20081101
  3. WARFARIN [Concomitant]
     Indication: PULMONARY EMBOLISM
     Route: 048

REACTIONS (5)
  - GAIT DISTURBANCE [None]
  - HEADACHE [None]
  - HYPERTENSION [None]
  - OEDEMA PERIPHERAL [None]
  - PAIN IN EXTREMITY [None]
